FAERS Safety Report 9738447 (Version 2)
Quarter: 2013Q4

REPORT INFORMATION
  Report Type: Report from Study
  Country: AU (occurrence: AU)
  Receive Date: 20131208
  Receipt Date: 20131208
  Transmission Date: 20140711
  Serious: Yes (Other)
  Sender: FDA-Public Use
  Company Number: AU-ROCHE-1211033

PATIENT
  Sex: Female

DRUGS (5)
  1. ACTEMRA [Suspect]
     Indication: RHEUMATOID ARTHRITIS
     Route: 042
     Dates: start: 20121006
  2. ACTEMRA [Suspect]
     Route: 042
     Dates: start: 20121022
  3. METHOTREXATE [Concomitant]
     Indication: RHEUMATOID ARTHRITIS
     Dosage: TAKING SINCE 4.5 YEARS
     Route: 048
  4. FOLATE [Concomitant]
     Dosage: TAKING SINCE 4.0 YEARS
     Route: 048
  5. PREDNISONE [Concomitant]
     Route: 065

REACTIONS (2)
  - Lower respiratory tract infection [Not Recovered/Not Resolved]
  - Asthma [Recovering/Resolving]
